FAERS Safety Report 23836590 (Version 2)
Quarter: 2024Q2

REPORT INFORMATION
  Report Type: Spontaneous
  Country: DE (occurrence: DE)
  Receive Date: 20240509
  Receipt Date: 20240614
  Transmission Date: 20240716
  Serious: Yes (Hospitalization, Other)
  Sender: FDA-Public Use
  Company Number: None

PATIENT

DRUGS (20)
  1. PEGASPARGASE [Suspect]
     Active Substance: PEGASPARGASE
     Indication: Chemotherapy
     Dosage: UNK
     Route: 065
     Dates: end: 20211007
  2. PEGASPARGASE [Suspect]
     Active Substance: PEGASPARGASE
     Dosage: UNK
     Route: 065
     Dates: start: 20220328
  3. METHOTREXATE [Suspect]
     Active Substance: METHOTREXATE
     Indication: Chemotherapy
     Dosage: 15 MILLIGRAM
     Route: 065
     Dates: start: 20220713
  4. METHOTREXATE [Suspect]
     Active Substance: METHOTREXATE
     Dosage: UNK (INCREASED IN ADVANCE)
     Route: 065
     Dates: start: 20230303
  5. DOXORUBICIN [Suspect]
     Active Substance: DOXORUBICIN
     Indication: Product used for unknown indication
     Dosage: UNK
     Route: 065
     Dates: start: 20220328
  6. KEPPRA [Suspect]
     Active Substance: LEVETIRACETAM
     Indication: Seizure
     Dosage: UNK
     Route: 065
     Dates: start: 20211007
  7. KEPPRA [Suspect]
     Active Substance: LEVETIRACETAM
     Dosage: 75-0-50 MG
     Route: 065
     Dates: start: 20220328
  8. KEPPRA [Suspect]
     Active Substance: LEVETIRACETAM
     Dosage: 500-0-500 MG TAPERED
     Route: 065
     Dates: start: 20220510, end: 20220704
  9. KEPPRA [Suspect]
     Active Substance: LEVETIRACETAM
     Dosage: CONCENTRATE FOR SOLUTION FOR INFUSION
     Route: 065
     Dates: start: 20211007
  10. VINCRISTINE SULFATE [Suspect]
     Active Substance: VINCRISTINE SULFATE
     Indication: Chemotherapy
     Dosage: UNK
     Route: 065
     Dates: end: 20211007
  11. VINCRISTINE SULFATE [Suspect]
     Active Substance: VINCRISTINE SULFATE
     Dosage: UNK
     Route: 065
     Dates: start: 20220328
  12. DAUNORUBICIN [Suspect]
     Active Substance: DAUNORUBICIN
     Indication: Chemotherapy
     Dosage: UNK
     Route: 065
     Dates: end: 20211007
  13. MERCAPTOPURINE [Suspect]
     Active Substance: MERCAPTOPURINE
     Indication: Chemotherapy
     Dosage: 35 MILLIGRAM
     Route: 065
     Dates: start: 20220713
  14. PREDNISONE [Suspect]
     Active Substance: PREDNISONE
     Indication: Chemotherapy
     Dosage: UNK
     Route: 065
     Dates: end: 20211007
  15. DEXAMETHASONE [Suspect]
     Active Substance: DEXAMETHASONE
     Indication: Product used for unknown indication
     Dosage: UNK
     Route: 065
     Dates: start: 20220328
  16. VIMPAT [Suspect]
     Active Substance: LACOSAMIDE
     Indication: Seizure
     Dosage: 100-0-100 MG
     Route: 065
     Dates: start: 20230303
  17. VIMPAT [Suspect]
     Active Substance: LACOSAMIDE
     Dosage: 150-0-150 MG
     Route: 065
     Dates: start: 20230417
  18. VIMPAT [Suspect]
     Active Substance: LACOSAMIDE
     Dosage: 175-0-150 MG
     Route: 065
     Dates: start: 20240313
  19. VIMPAT [Suspect]
     Active Substance: LACOSAMIDE
     Dosage: 75-0-50 MG
     Route: 065
     Dates: start: 20220328
  20. VIMPAT [Suspect]
     Active Substance: LACOSAMIDE
     Dosage: 100-0-50 MG
     Route: 065
     Dates: start: 20220713

REACTIONS (14)
  - Hepatic enzyme increased [Unknown]
  - Vomiting [Unknown]
  - Headache [Unknown]
  - Seizure [Unknown]
  - Status epilepticus [Unknown]
  - Partial seizures [Unknown]
  - Middle insomnia [Unknown]
  - Infection [Unknown]
  - Pyrexia [Unknown]
  - Cough [Unknown]
  - Muscle spasms [Unknown]
  - Scratch [Unknown]
  - Eye movement disorder [Unknown]
  - Erythema infectiosum [Unknown]

NARRATIVE: CASE EVENT DATE: 20211001
